FAERS Safety Report 5205626-3 (Version None)
Quarter: 2007Q1

REPORT INFORMATION
  Report Type: 
  Country: None (occurrence: None)
  Receive Date: 20070111
  Receipt Date: 20070108
  Transmission Date: 20070707
  Serious: Yes (Hospitalization, Other)
  Sender: FDA-Public Use
  Company Number: US-ELI_LILLY_AND_COMPANY-US200612001841

PATIENT
  Age: 61 Year
  Sex: Female

DRUGS (3)
  1. HUMULIN 70/30 [Suspect]
     Indication: DIABETES MELLITUS NON-INSULIN-DEPENDENT
     Dosage: 70 U, EACH MORNING
     Dates: start: 19890101
  2. HUMULIN 70/30 [Suspect]
     Dosage: 30 U, EACH EVENING
     Dates: start: 19890101
  3. POTASSIUM ACETATE [Concomitant]
     Dosage: UNK, UNKNOWN

REACTIONS (15)
  - ABDOMINAL PAIN [None]
  - ANGIOEDEMA [None]
  - BLOOD PRESSURE INCREASED [None]
  - CARDIAC DISORDER [None]
  - COLITIS [None]
  - CORONARY ARTERY DISEASE [None]
  - CROHN'S DISEASE [None]
  - DYSPNOEA [None]
  - LIP DISORDER [None]
  - LIP SWELLING [None]
  - MITRAL VALVE INCOMPETENCE [None]
  - MYOCARDIAL INFARCTION [None]
  - OEDEMA PERIPHERAL [None]
  - PHARMACEUTICAL PRODUCT COMPLAINT [None]
  - POLLAKIURIA [None]
